FAERS Safety Report 8890304 (Version 1)
Quarter: 2012Q4

REPORT INFORMATION
  Report Type: 
  Country: CA (occurrence: CA)
  Receive Date: 20121106
  Receipt Date: 20121106
  Transmission Date: 20130627
  Serious: Yes (Other)
  Sender: FDA-Public Use
  Company Number: PHHY2005CA007188

PATIENT
  Sex: Female

DRUGS (10)
  1. SANDOSTATIN LAR [Suspect]
     Indication: ACROMEGALY
     Dosage: 30 mg, QMO
     Dates: start: 20050105
  2. AVAPRO [Concomitant]
  3. CORTEF [Concomitant]
  4. DOSTINEX [Concomitant]
  5. HYDROCHLOROTHIAZIDE [Concomitant]
  6. LIPITOR [Concomitant]
  7. NORVAGEN [Concomitant]
  8. PREMARIN [Concomitant]
  9. SYNTHROID [Concomitant]
  10. VTIAMIN D [Concomitant]

REACTIONS (9)
  - Hypotension [Unknown]
  - Cataract [Unknown]
  - Hyperglycaemia [Unknown]
  - Blood pressure systolic increased [Unknown]
  - Blood glucose increased [Unknown]
  - Fatigue [Unknown]
  - Dyspnoea [Unknown]
  - Constipation [Unknown]
  - Bradycardia [Unknown]
